FAERS Safety Report 22965085 (Version 4)
Quarter: 2023Q4

REPORT INFORMATION
  Report Type: Spontaneous
  Country: US (occurrence: US)
  Receive Date: 20230921
  Receipt Date: 20231113
  Transmission Date: 20240109
  Serious: Yes (Other)
  Sender: FDA-Public Use
  Company Number: US-BRISTOL-MYERS SQUIBB COMPANY-2023-130521

PATIENT
  Age: 84 Year
  Sex: Male

DRUGS (1)
  1. LENALIDOMIDE [Suspect]
     Active Substance: LENALIDOMIDE
     Indication: Plasma cell leukaemia
     Dosage: TAKE 1 CAPSULE BY MOUTH WHOLE W/ WATER DAILY FOR 14 DAYS ON, 7 DAYS OFF OF A 21 DAY CYCLE . DON^T BR
     Route: 048
     Dates: start: 20230920, end: 20231003

REACTIONS (3)
  - Off label use [Unknown]
  - Rash pruritic [Recovered/Resolved with Sequelae]
  - Carotid artery disease [Unknown]

NARRATIVE: CASE EVENT DATE: 20230927
